FAERS Safety Report 7023260-X (Version None)
Quarter: 2010Q3

REPORT INFORMATION
  Report Type: 
  Country: None (occurrence: None)
  Receive Date: 20100930
  Receipt Date: 20100923
  Transmission Date: 20110219
  Serious: Yes (Hospitalization)
  Sender: FDA-Public Use
  Company Number: FR-ABBOTT-10P-056-0672630-00

PATIENT
  Age: 59 Year
  Sex: Female

DRUGS (5)
  1. ZECLAR TABLETS [Suspect]
     Indication: TONSILLITIS
     Route: 048
     Dates: start: 20100806
  2. THYROZOL [Suspect]
     Indication: BASEDOW'S DISEASE
     Dosage: 1 DOSAGE FORM 1 IN 1 DAY
     Route: 048
     Dates: start: 20100701, end: 20100813
  3. PIVALONE [Suspect]
     Indication: TONSILLITIS
     Route: 045
     Dates: start: 20100806
  4. LEVOTHYROXINE (LEVOTRYROX) (NON-ABBOTT) [Suspect]
     Indication: BASEDOW'S DISEASE
     Dates: end: 20100813
  5. DOLIPRANE [Suspect]
     Indication: TONSILLITIS
     Route: 048
     Dates: start: 20100806

REACTIONS (5)
  - AGRANULOCYTOSIS [None]
  - DIARRHOEA [None]
  - PYELONEPHRITIS ACUTE [None]
  - PYREXIA [None]
  - TONSILLITIS [None]
